FAERS Safety Report 8573963-0 (Version None)
Quarter: 2012Q3

REPORT INFORMATION
  Report Type: 
  Country: None (occurrence: None)
  Receive Date: 20120806
  Receipt Date: 20100510
  Transmission Date: 20120928
  Serious: Yes (Hospitalization, Other)
  Sender: FDA-Public Use
  Company Number: DE-CELGENEUS-062-21880-12053425

PATIENT
  Age: 59 Year
  Sex: Female
  Weight: 55 kg

DRUGS (38)
  1. ACETYLSALICYLIC ACID [Concomitant]
     Route: 065
     Dates: start: 20090120
  2. HEPARIN [Concomitant]
     Indication: ANTICOAGULANT THERAPY
     Route: 065
  3. DEXAMETHASONE [Concomitant]
     Route: 048
     Dates: start: 20090114
  4. BISPHOSPHONATE [Concomitant]
     Route: 065
  5. HEPARIN [Concomitant]
     Route: 065
     Dates: start: 20090410
  6. HEPARIN [Concomitant]
     Route: 065
     Dates: start: 20091125
  7. REVLIMID [Suspect]
     Indication: MULTIPLE MYELOMA
     Route: 048
     Dates: start: 20081208
  8. BISPHOSPHONATE [Concomitant]
     Route: 065
     Dates: start: 20090410
  9. ACETYLSALICYLIC ACID [Concomitant]
     Indication: ANTICOAGULANT THERAPY
     Route: 065
  10. ACETYLSALICYLIC ACID [Concomitant]
     Route: 065
     Dates: start: 20091125
  11. ACETYLSALICYLIC ACID [Concomitant]
     Route: 065
     Dates: start: 20091223
  12. DEXAMETHASONE [Concomitant]
     Indication: MULTIPLE MYELOMA
     Route: 048
     Dates: start: 20081208
  13. DEXAMETHASONE [Concomitant]
     Route: 048
     Dates: start: 20090312
  14. BISPHOSPHONATE [Concomitant]
     Route: 065
     Dates: start: 20090630
  15. BISPHOSPHONATE [Concomitant]
     Route: 065
     Dates: start: 20090728
  16. ACETYLSALICYLIC ACID [Concomitant]
     Route: 065
     Dates: start: 20090923
  17. HEPARIN [Concomitant]
     Route: 065
     Dates: start: 20091028
  18. IMMUNE GLOBULIN NOS [Concomitant]
     Route: 065
     Dates: start: 20090630
  19. HEPARIN [Concomitant]
     Route: 065
     Dates: start: 20091223
  20. ACETYLSALICYLIC ACID [Concomitant]
     Route: 065
     Dates: start: 20090519
  21. ACETYLSALICYLIC ACID [Concomitant]
     Route: 065
     Dates: start: 20090630
  22. ACETYLSALICYLIC ACID [Concomitant]
     Route: 065
     Dates: start: 20091028
  23. HEPARIN [Concomitant]
     Route: 065
     Dates: start: 20090519
  24. REVLIMID [Suspect]
     Route: 048
     Dates: start: 20090312
  25. REVLIMID [Suspect]
     Route: 048
     Dates: start: 20090410
  26. REVLIMID [Suspect]
     Route: 048
  27. METOCLOPRAMIDE [Concomitant]
     Indication: ANTIEMETIC SUPPORTIVE CARE
     Route: 065
  28. BISPHOSPHONATE [Concomitant]
     Route: 065
     Dates: start: 20090826
  29. ACETYLSALICYLIC ACID [Concomitant]
     Route: 065
     Dates: start: 20090410
  30. HEPARIN [Concomitant]
     Route: 065
     Dates: start: 20090826
  31. HEPARIN [Concomitant]
     Route: 065
     Dates: start: 20100120
  32. REVLIMID [Suspect]
     Route: 048
     Dates: start: 20090114
  33. BISPHOSPHONATE [Concomitant]
     Route: 065
     Dates: start: 20090519
  34. ACETYLSALICYLIC ACID [Concomitant]
     Route: 065
     Dates: start: 20090728
  35. ACETYLSALICYLIC ACID [Concomitant]
     Route: 065
     Dates: start: 20090826
  36. HEPARIN [Concomitant]
     Route: 065
     Dates: start: 20090630
  37. HEPARIN [Concomitant]
     Route: 065
     Dates: start: 20090728
  38. HEPARIN [Concomitant]
     Route: 065
     Dates: start: 20090923

REACTIONS (9)
  - INFECTION [None]
  - THROMBOCYTOPENIA [None]
  - LEUKOPENIA [None]
  - OSTEONECROSIS OF JAW [None]
  - ANAEMIA [None]
  - BLOOD CREATININE INCREASED [None]
  - PNEUMONIA [None]
  - MULTIPLE MYELOMA [None]
  - GRANULOCYTOPENIA [None]
